FAERS Safety Report 13255863 (Version 1)
Quarter: 2017Q1

REPORT INFORMATION
  Report Type: Spontaneous
  Country: US (occurrence: US)
  Receive Date: 20170219
  Receipt Date: 20170219
  Transmission Date: 20170428
  Serious: Yes (Hospitalization, Disabling)
  Sender: FDA-Public Use
  Company Number: None

PATIENT
  Age: 44 Year
  Sex: Male
  Weight: 83.25 kg

DRUGS (1)
  1. ULTRAM [Suspect]
     Active Substance: TRAMADOL HYDROCHLORIDE
     Indication: EUSTACHIAN TUBE DISORDER
     Dosage: ?          QUANTITY:1 CAPSULE(S);?
     Route: 048

REACTIONS (9)
  - Panic reaction [None]
  - Stress [None]
  - Weight decreased [None]
  - Transient ischaemic attack [None]
  - Insomnia [None]
  - Depersonalisation/derealisation disorder [None]
  - Impaired self-care [None]
  - Feeding disorder [None]
  - Blood pressure increased [None]

NARRATIVE: CASE EVENT DATE: 20150820
